FAERS Safety Report 8986488 (Version 1)
Quarter: 2012Q4

REPORT INFORMATION
  Report Type: 
  Country: DE (occurrence: DE)
  Receive Date: 20121227
  Receipt Date: 20121227
  Transmission Date: 20130627
  Serious: Yes (Hospitalization)
  Sender: FDA-Public Use
  Company Number: DE-SANOFI-AVENTIS-2012SA094037

PATIENT
  Age: 82 Year
  Sex: Male

DRUGS (4)
  1. CICLOPIROX [Suspect]
     Indication: DRUG USE FOR UNKNOWN INDICATION
     Route: 003
  2. BISOPROLOL [Concomitant]
  3. DIGITOXIN [Concomitant]
  4. PHENPROCOUMON [Concomitant]
     Indication: HEART VALVE REPLACEMENT NOS

REACTIONS (2)
  - Feeling hot [Unknown]
  - Pyrexia [Unknown]
